FAERS Safety Report 8782132 (Version 1)
Quarter: 2012Q4

REPORT INFORMATION
  Report Type: Report from Study
  Country: US (occurrence: US)
  Receive Date: 20120913
  Receipt Date: 20120913
  Transmission Date: 20130627
  Serious: No
  Sender: FDA-Public Use
  Company Number: US-VERTEX PHARMACEUTICAL INC.-AE-2012-008687

PATIENT

DRUGS (6)
  1. INCIVEK [Suspect]
     Indication: HEPATITIS C
     Route: 048
  2. RIBAPAK [Concomitant]
     Indication: HEPATITIS C
  3. PEGASYS PROCLICK [Concomitant]
     Indication: HEPATITIS C
  4. CITALOPRAM [Concomitant]
  5. MULTIVITAMINS [Concomitant]
  6. ASPIRIN CHEWABLE [Concomitant]

REACTIONS (7)
  - Visual impairment [Unknown]
  - Influenza like illness [Unknown]
  - Irritability [Unknown]
  - Fatigue [Unknown]
  - Rash [Unknown]
  - Pruritus [Unknown]
  - Dysgeusia [Unknown]
